FAERS Safety Report 7443698-6 (Version None)
Quarter: 2011Q2

REPORT INFORMATION
  Report Type: 
  Country: None (occurrence: None)
  Receive Date: 20110428
  Receipt Date: 20100810
  Transmission Date: 20111010
  Serious: No
  Sender: FDA-Public Use
  Company Number: US-ABBOTT-10P-163-0663258-00

PATIENT
  Sex: Male
  Weight: 77.18 kg

DRUGS (3)
  1. METOPROLOL [Concomitant]
     Indication: PRODUCT USED FOR UNKNOWN INDICATION
     Dosage: BID UNKNOWN STRENGTH
     Route: 048
  2. MAVIK [Suspect]
     Indication: BLOOD PRESSURE
     Dosage: 1/2 TABLET QD UNSURE OF STRENGTH
     Route: 048
     Dates: start: 20100101
  3. LIPITOR [Concomitant]
     Indication: BLOOD CHOLESTEROL INCREASED
     Route: 048

REACTIONS (2)
  - HEARING IMPAIRED [None]
  - TINNITUS [None]
